FAERS Safety Report 16647761 (Version 2)
Quarter: 2019Q3

REPORT INFORMATION
  Report Type: Report from Study
  Country: None (occurrence: GR)
  Receive Date: 20190730
  Receipt Date: 20190808
  Transmission Date: 20191004
  Serious: Yes (Death)
  Sender: FDA-Public Use
  Company Number: GR-ABBVIE-19K-066-2871171-00

PATIENT
  Age: 61 Year
  Sex: Male
  Weight: 72 kg

DRUGS (5)
  1. DUODOPA [Suspect]
     Active Substance: CARBIDOPA\LEVODOPA
     Indication: PARKINSON^S DISEASE
     Dosage: MD:6ML;CD: 3,8ML/H; CD: 2,3ML/H ED:2ML THE PUMP OPERATES ON A 24H BASIS
     Route: 050
     Dates: start: 20170309
  2. ZYPREXA [Concomitant]
     Active Substance: OLANZAPINE
     Indication: PRODUCT USED FOR UNKNOWN INDICATION
     Route: 048
  3. NEUPRO [Concomitant]
     Active Substance: ROTIGOTINE
     Indication: PARKINSON^S DISEASE
     Route: 048
  4. LADOSE [Concomitant]
     Active Substance: FLUOXETINE HYDROCHLORIDE
     Indication: PRODUCT USED FOR UNKNOWN INDICATION
     Route: 048
  5. CLONOTRIL [Concomitant]
     Active Substance: CLONAZEPAM
     Indication: INSOMNIA
     Route: 048

REACTIONS (7)
  - Abdominal hernia [Fatal]
  - Intestinal obstruction [Fatal]
  - Myocardial ischaemia [Fatal]
  - Discoloured vomit [Fatal]
  - Hyperhidrosis [Unknown]
  - Hypotension [Fatal]
  - Dyschezia [Unknown]

NARRATIVE: CASE EVENT DATE: 20190718
